FAERS Safety Report 10428512 (Version 1)
Quarter: 2014Q3

REPORT INFORMATION
  Report Type: Spontaneous
  Country: US (occurrence: None)
  Receive Date: 20140829
  Receipt Date: 20140829
  Transmission Date: 20150326
  Serious: Yes (Death, Other)
  Sender: FDA-Public Use
  Company Number: 153602

PATIENT
  Age: 46 Year
  Sex: Female

DRUGS (1)
  1. ADRIAMYCIN [Suspect]
     Active Substance: DOXORUBICIN HYDROCHLORIDE
     Indication: BREAST CANCER
     Dosage: IV INFUSION
     Route: 042

REACTIONS (19)
  - Supraventricular tachycardia [None]
  - Lobar pneumonia [None]
  - Bone marrow failure [None]
  - Delirium [None]
  - Atrial fibrillation [None]
  - Enterococcal sepsis [None]
  - Bundle branch block right [None]
  - Electrocardiogram T wave inversion [None]
  - Aspiration [None]
  - Pulmonary cavitation [None]
  - B precursor type acute leukaemia [None]
  - Tachycardia [None]
  - Respiratory distress [None]
  - Pneumonia [None]
  - Liver function test abnormal [None]
  - Atrial flutter [None]
  - Oesophageal rupture [None]
  - Stem cell transplant [None]
  - Renal failure [None]

NARRATIVE: CASE EVENT DATE: 20130408
